FAERS Safety Report 9399989 (Version 2)
Quarter: 2013Q4

REPORT INFORMATION
  Report Type: Spontaneous
  Country: JP (occurrence: JP)
  Receive Date: 20130715
  Receipt Date: 20131114
  Transmission Date: 20140711
  Serious: Yes (Life-Threatening)
  Sender: FDA-Public Use
  Company Number: JP-ELI_LILLY_AND_COMPANY-JP201307002936

PATIENT
  Age: 30 Year
  Sex: Female

DRUGS (6)
  1. ZYPREXA [Suspect]
     Indication: SCHIZOPHRENIA
     Dosage: 10 MG, QD
     Route: 048
     Dates: start: 20130518, end: 20130627
  2. ZYPREXA [Suspect]
     Dosage: 2.5 MG, QD
     Route: 048
     Dates: start: 20130705, end: 20130706
  3. DOGMATYL [Concomitant]
     Indication: PRODUCT USED FOR UNKNOWN INDICATION
     Dosage: 150 MG, UNK
     Route: 048
     Dates: start: 20130610, end: 20130627
  4. IMPROMEN                           /00568801/ [Concomitant]
     Dosage: UNK
     Route: 048
     Dates: start: 20130617
  5. ARTANE [Concomitant]
     Dosage: UNK
     Route: 048
     Dates: start: 20130617
  6. CONTOMIN [Concomitant]
     Indication: PRODUCT USED FOR UNKNOWN INDICATION
     Dosage: 50 MG, UNK
     Route: 048
     Dates: start: 20130617, end: 20130627

REACTIONS (1)
  - Hepatitis [Recovered/Resolved]
